FAERS Safety Report 9632904 (Version 1)
Quarter: 2013Q4

REPORT INFORMATION
  Report Type: Spontaneous
  Country: IT (occurrence: IT)
  Receive Date: 20131018
  Receipt Date: 20131018
  Transmission Date: 20140711
  Serious: Yes (Other)
  Sender: FDA-Public Use
  Company Number: PHHY2013IT114079

PATIENT
  Age: 43 Year
  Sex: Female

DRUGS (10)
  1. OMEPRAZOLE [Suspect]
     Dates: start: 20130915, end: 20130915
  2. CLARITHROMYCIN [Suspect]
     Route: 048
     Dates: start: 20130915, end: 20130915
  3. HALDOL [Suspect]
     Dates: start: 20130915, end: 20130915
  4. NORMIX [Suspect]
     Route: 048
     Dates: start: 20130915, end: 20130915
  5. VALIUM [Suspect]
     Route: 048
     Dates: start: 20130915, end: 20130915
  6. AMBROMUCIL [Suspect]
     Route: 048
     Dates: start: 20130915, end: 20130915
  7. NOVALGINA [Suspect]
     Route: 048
     Dates: start: 20130915, end: 20130915
  8. ZYLORIC [Suspect]
     Route: 048
     Dates: start: 20130915, end: 20130915
  9. IMPROMEN [Suspect]
     Route: 048
     Dates: start: 20130915, end: 20130915
  10. DISIPAL [Suspect]
     Route: 048
     Dates: start: 20130915, end: 20130915

REACTIONS (3)
  - Psychomotor retardation [Unknown]
  - Intentional self-injury [Unknown]
  - Confusional state [Unknown]
